FAERS Safety Report 8202600-X (Version None)
Quarter: 2012Q1

REPORT INFORMATION
  Report Type: 
  Country: None (occurrence: None)
  Receive Date: 20120312
  Receipt Date: 20120229
  Transmission Date: 20120608
  Serious: Yes (Other)
  Sender: FDA-Public Use
  Company Number: NL-JNJFOC-20120301543

PATIENT
  Age: 56 Year
  Sex: Male

DRUGS (2)
  1. KETOCONAZOLE [Suspect]
     Indication: CUSHING'S SYNDROME
     Route: 065
  2. METYRAPONE [Suspect]
     Indication: CUSHING'S SYNDROME
     Route: 065

REACTIONS (1)
  - ADVERSE DRUG REACTION [None]
